FAERS Safety Report 7997279-6 (Version None)
Quarter: 2011Q4

REPORT INFORMATION
  Report Type: 
  Country: None (occurrence: None)
  Receive Date: 20111122
  Receipt Date: 20110727
  Transmission Date: 20120403
  Serious: No
  Sender: FDA-Public Use
  Company Number: PHHY2011US69582

PATIENT
  Age: 48 Year
  Sex: Female

DRUGS (5)
  1. BACLC ZANAFLEX (TIZANIDINE HYDROCHLORIDE) [Concomitant]
  2. XANAX [Concomitant]
  3. GILENYA [Suspect]
     Indication: MULTIPLE SCLEROSIS
     Dosage: 0.5 MG, DAILY, ORAL
     Route: 048
     Dates: start: 20110617
  4. SUCRALFATE [Concomitant]
  5. AMBIEN [Concomitant]

REACTIONS (2)
  - DIARRHOEA [None]
  - VOMITING [None]
